FAERS Safety Report 18912420 (Version 1)
Quarter: 2021Q1

REPORT INFORMATION
  Report Type: Report from Study
  Country: CO (occurrence: CO)
  Receive Date: 20210218
  Receipt Date: 20210218
  Transmission Date: 20210420
  Serious: Yes (Other)
  Sender: FDA-Public Use
  Company Number: NVSC2021CO034558

PATIENT
  Sex: Male
  Weight: 59 kg

DRUGS (2)
  1. METFORMIN [Suspect]
     Active Substance: METFORMIN HYDROCHLORIDE
     Indication: DIABETES MELLITUS
     Dosage: 850 MG, Q24H, STARTED APPROXIMATELY 3 YEARS AGO
     Route: 048
  2. FOLIC ACID. [Concomitant]
     Active Substance: FOLIC ACID
     Indication: PRODUCT USED FOR UNKNOWN INDICATION
     Dosage: UNK, Q24H, STARTED APPROXIMATELY 1 YEAR AGO
     Route: 048

REACTIONS (2)
  - Aplastic anaemia [Unknown]
  - Off label use [Unknown]
